FAERS Safety Report 14660257 (Version 1)
Quarter: 2018Q1

REPORT INFORMATION
  Report Type: Spontaneous
  Country: US (occurrence: US)
  Receive Date: 20180317
  Receipt Date: 20180317
  Transmission Date: 20180509
  Serious: No
  Sender: FDA-Public Use
  Company Number: None

PATIENT
  Age: 52 Year
  Sex: Male
  Weight: 94.5 kg

DRUGS (13)
  1. ACCLEAN [Suspect]
     Active Substance: SODIUM FLUORIDE
     Indication: GINGIVAL DISORDER
     Route: 048
     Dates: start: 20180312, end: 20180316
  2. ALPRAZOLAM. [Concomitant]
     Active Substance: ALPRAZOLAM
  3. TMAZEPAM [Concomitant]
  4. DIGOXIN. [Concomitant]
     Active Substance: DIGOXIN
  5. OMEGA 3 [Concomitant]
     Active Substance: OMEGA-3 FATTY ACIDS
  6. TYLENOL [Concomitant]
     Active Substance: ACETAMINOPHEN
  7. CARVEDILOL. [Concomitant]
     Active Substance: CARVEDILOL
  8. ENALAPRIL [Concomitant]
     Active Substance: ENALAPRIL
  9. RANEXA [Concomitant]
     Active Substance: RANOLAZINE
  10. FUROSEMIDE. [Concomitant]
     Active Substance: FUROSEMIDE
  11. ASPIRIN. [Concomitant]
     Active Substance: ASPIRIN
  12. FENOFIBRATE. [Concomitant]
     Active Substance: FENOFIBRATE
  13. POTASSIUM [Concomitant]
     Active Substance: POTASSIUM

REACTIONS (12)
  - Oral discomfort [None]
  - Stomatitis [None]
  - Tongue coated [None]
  - Glossitis [None]
  - Ageusia [None]
  - Feeling abnormal [None]
  - Toothache [None]
  - Headache [None]
  - Sinus disorder [None]
  - Tongue dry [None]
  - Chest discomfort [None]
  - Cardiac failure congestive [None]

NARRATIVE: CASE EVENT DATE: 20180312
